FAERS Safety Report 8419405-7 (Version None)
Quarter: 2012Q2

REPORT INFORMATION
  Report Type: 
  Country: None (occurrence: None)
  Receive Date: 20120607
  Receipt Date: 20120530
  Transmission Date: 20120825
  Serious: Yes (Hospitalization)
  Sender: FDA-Public Use
  Company Number: US-GLAXOSMITHKLINE-A0898142A

PATIENT
  Sex: Female
  Weight: 107.7 kg

DRUGS (8)
  1. VIOXX [Concomitant]
  2. PLAQUENIL [Concomitant]
  3. LIPITOR [Concomitant]
  4. METHOTREXATE [Concomitant]
  5. AVANDIA [Suspect]
     Indication: DIABETES MELLITUS
     Dosage: 4MG PER DAY
     Route: 048
     Dates: start: 20000919, end: 20031110
  6. GLUCOTROL XL [Concomitant]
  7. HYDROCHLOROTHIAZIDE [Concomitant]
  8. MONOPRIL [Concomitant]

REACTIONS (3)
  - CARDIOVASCULAR DISORDER [None]
  - CARDIAC FAILURE CONGESTIVE [None]
  - CARDIAC DISORDER [None]
